FAERS Safety Report 8110890-7 (Version None)
Quarter: 2012Q1

REPORT INFORMATION
  Report Type: 
  Country: None (occurrence: None)
  Receive Date: 20120127
  Receipt Date: 20120120
  Transmission Date: 20120608
  Serious: Yes (Other)
  Sender: FDA-Public Use
  Company Number: 2011030611

PATIENT
  Age: 40 Year
  Sex: Female
  Weight: 113.8529 kg

DRUGS (45)
  1. ABILIFY [Concomitant]
  2. TYLENOL WITH CODEINE (PANADEINE CO) [Concomitant]
  3. LIPITOR [Concomitant]
  4. WELLBUTRIN XL [Concomitant]
  5. MULTIVITAMIN (MULTIVITAMIN /00831701/) [Concomitant]
  6. HIZENTRA [Suspect]
  7. VALTREX [Concomitant]
  8. CLONAZEPAM [Concomitant]
  9. SYMBICORT [Concomitant]
  10. PRO-AIR HFA (PROCATEROL HYDROCHLORIDE) [Concomitant]
  11. RANITIDINE HYDROCHLORIDE [Concomitant]
  12. MAGOX (MAGNESIUM) [Concomitant]
  13. HIZENTRA [Suspect]
  14. HIZENTRA [Suspect]
  15. XENICAL [Concomitant]
  16. LEVOTHYROXINE SODIUM [Concomitant]
  17. DOCUSATE POTASSIUM (DOCUSATE POTASSIUM) [Concomitant]
  18. ESTRADIOL [Concomitant]
  19. MIRALAX [Concomitant]
  20. REQUIP [Concomitant]
  21. HIZENTRA [Suspect]
  22. BUSPAR [Concomitant]
  23. PREVACID [Concomitant]
  24. HYDROCODONE BITARTRATE + ACETAMINOPHEN [Concomitant]
  25. PERCOCET [Concomitant]
  26. TOPAMAX [Concomitant]
  27. OPTIVAR [Concomitant]
  28. SAVELLA [Concomitant]
  29. HIZENTRA [Suspect]
     Indication: HYPOGLOBULINAEMIA
     Dosage: (23 G 1X/WEEK, 115 ML VIA 6 SITES OVER 1 HOUR 52 MINUTES SUBCUTANEOUS), (), (), (), (2 GM (10 ML) ON
     Route: 058
     Dates: start: 20110313
  30. HIZENTRA [Suspect]
     Indication: IMMUNODEFICIENCY
     Dosage: (23 G 1X/WEEK, 115 ML VIA 6 SITES OVER 1 HOUR 52 MINUTES SUBCUTANEOUS), (), (), (), (2 GM (10 ML) ON
     Route: 058
     Dates: start: 20110313
  31. HIZENTRA [Suspect]
     Indication: HYPOGLOBULINAEMIA
     Dosage: (23 G 1X/WEEK, 115 ML VIA 6 SITES OVER 1 HOUR 52 MINUTES SUBCUTANEOUS), (), (), (), (2 GM (10 ML) ON
     Route: 058
     Dates: start: 20111210
  32. HIZENTRA [Suspect]
     Indication: IMMUNODEFICIENCY
     Dosage: (23 G 1X/WEEK, 115 ML VIA 6 SITES OVER 1 HOUR 52 MINUTES SUBCUTANEOUS), (), (), (), (2 GM (10 ML) ON
     Route: 058
     Dates: start: 20111210
  33. HIZENTRA [Suspect]
     Indication: HYPOGLOBULINAEMIA
     Dosage: (23 G 1X/WEEK, 115 ML VIA 6 SITES OVER 1 HOUR 52 MINUTES SUBCUTANEOUS), (), (), (), (2 GM (10 ML) ON
     Route: 058
     Dates: start: 20111210
  34. HIZENTRA [Suspect]
     Indication: IMMUNODEFICIENCY
     Dosage: (23 G 1X/WEEK, 115 ML VIA 6 SITES OVER 1 HOUR 52 MINUTES SUBCUTANEOUS), (), (), (), (2 GM (10 ML) ON
     Route: 058
     Dates: start: 20111210
  35. HIZENTRA [Suspect]
     Indication: HYPOGLOBULINAEMIA
     Dosage: (23 G 1X/WEEK, 115 ML VIA 6 SITES OVER 1 HOUR 52 MINUTES SUBCUTANEOUS), (), (), (), (2 GM (10 ML) ON
     Route: 058
     Dates: start: 20111210
  36. HIZENTRA [Suspect]
     Indication: IMMUNODEFICIENCY
     Dosage: (23 G 1X/WEEK, 115 ML VIA 6 SITES OVER 1 HOUR 52 MINUTES SUBCUTANEOUS), (), (), (), (2 GM (10 ML) ON
     Route: 058
     Dates: start: 20111210
  37. HIZENTRA [Suspect]
  38. MELOXICAM [Concomitant]
  39. ALBUTEROL [Concomitant]
  40. SPIRIVA [Concomitant]
  41. CLARITIN [Concomitant]
  42. IRON (IRON) [Concomitant]
  43. OBETROL [Concomitant]
  44. SINGULAIR [Concomitant]
  45. CALCIUM CARBONATE [Concomitant]

REACTIONS (3)
  - CANDIDIASIS [None]
  - UPPER RESPIRATORY TRACT INFECTION [None]
  - SINUSITIS [None]
